FAERS Safety Report 5592541-9 (Version None)
Quarter: 2008Q1

REPORT INFORMATION
  Report Type: 
  Country: None (occurrence: None)
  Receive Date: 20080111
  Receipt Date: 20080103
  Transmission Date: 20080703
  Serious: Yes (Congenital Anomaly)
  Sender: FDA-Public Use
  Company Number: B0461230A

PATIENT
  Sex: Male
  Weight: 2.903 kg

DRUGS (4)
  1. LAMICTAL [Suspect]
     Indication: PARTIAL SEIZURES
     Dosage: TRANSPLACENTARY
     Route: 064
  2. CARBAMAZEPINE [Suspect]
     Indication: PARTIAL SEIZURES
     Dosage: TRANSPLACENTARY
     Route: 064
  3. CLOBAZAM (FORMULATION UNKNOWN) (CLOBAZAM) [Suspect]
     Indication: PARTIAL SEIZURES
     Dosage: TRANSPLACENTARY
     Route: 064
  4. LEVETIRACETAM [Suspect]
     Indication: EPILEPSY
     Dosage: TRANSPLACENTARY
     Route: 064

REACTIONS (2)
  - DRUG EXPOSURE DURING PREGNANCY [None]
  - PILONIDAL CYST CONGENITAL [None]
